FAERS Safety Report 16320663 (Version 1)
Quarter: 2019Q2

REPORT INFORMATION
  Report Type: Spontaneous
  Country: GB (occurrence: GB)
  Receive Date: 20190516
  Receipt Date: 20190516
  Transmission Date: 20190711
  Serious: Yes (Other)
  Sender: FDA-Public Use
  Company Number: GB-MYLANLABS-2019M1045660

PATIENT
  Age: 42 Year
  Sex: Male
  Weight: 80 kg

DRUGS (2)
  1. CARBAMAZEPINE. [Suspect]
     Active Substance: CARBAMAZEPINE
     Indication: NEUROVASCULAR CONFLICT
     Dosage: 300 MILLIGRAM
     Route: 048
     Dates: start: 20180518, end: 20180620
  2. OXCARBAZEPINE. [Suspect]
     Active Substance: OXCARBAZEPINE
     Indication: NEUROVASCULAR CONFLICT
     Dosage: 300 MILLIGRAM
     Route: 048
     Dates: start: 20180803, end: 20180916

REACTIONS (3)
  - Urinary retention [Recovered/Resolved]
  - Urinary tract infection [Unknown]
  - Off label use [Unknown]

NARRATIVE: CASE EVENT DATE: 20180601
